FAERS Safety Report 24674870 (Version 1)
Quarter: 2024Q4

REPORT INFORMATION
  Report Type: Spontaneous
  Country: SI (occurrence: SI)
  Receive Date: 20241128
  Receipt Date: 20241128
  Transmission Date: 20250115
  Serious: Yes (Other)
  Sender: TEVA
  Company Number: SI-TEVA-VS-3268115

PATIENT
  Age: 52 Year
  Sex: Female

DRUGS (2)
  1. MYCOPHENOLATE MOFETIL [Suspect]
     Active Substance: MYCOPHENOLATE MOFETIL
     Indication: Systemic scleroderma
     Route: 065
  2. FILGOTINIB [Suspect]
     Active Substance: FILGOTINIB
     Indication: Systemic scleroderma
     Route: 065

REACTIONS (9)
  - Therapy non-responder [Unknown]
  - Retinal oedema [Recovering/Resolving]
  - Vision blurred [Not Recovered/Not Resolved]
  - Subretinal fluid [Recovering/Resolving]
  - Pseudopapilloedema [Recovering/Resolving]
  - Cystoid macular oedema [Recovering/Resolving]
  - Retinal artery occlusion [Recovering/Resolving]
  - Retinal ischaemia [Recovering/Resolving]
  - Retinal vein occlusion [Recovering/Resolving]
